FAERS Safety Report 8498510-3 (Version None)
Quarter: 2012Q3

REPORT INFORMATION
  Report Type: 
  Country: None (occurrence: None)
  Receive Date: 20120709
  Receipt Date: 20120625
  Transmission Date: 20120928
  Serious: No
  Sender: FDA-Public Use
  Company Number: US-AMGEN-USASP2012039307

PATIENT
  Age: 50 Year
  Sex: Female
  Weight: 82.993 kg

DRUGS (14)
  1. INSULIN LISPRO [Concomitant]
     Indication: DIABETES MELLITUS
     Dosage: UNK
  2. IBUPROFEN [Concomitant]
     Indication: PAIN
     Dosage: UNK
  3. HUMIRA [Suspect]
     Indication: RHEUMATOID ARTHRITIS
     Dosage: 40 MG, Q2WK
  4. TRAMADOL HCL [Concomitant]
     Indication: PAIN
     Dosage: UNK
  5. ZEBETA [Concomitant]
     Indication: HYPERTENSION
     Dosage: UNK
  6. IBUPROFEN [Concomitant]
     Indication: RHEUMATOID ARTHRITIS
  7. LISINOPRIL [Concomitant]
     Indication: HYPERTENSION
     Dosage: UNK
  8. PREDNISONE [Concomitant]
     Indication: RHEUMATOID ARTHRITIS
     Dosage: UNK
  9. AMLODIPINE BESYLATE [Concomitant]
     Indication: HYPERTENSION
     Dosage: UNK
  10. OSTEO-BI-FLEX [Concomitant]
     Indication: RHEUMATOID ARTHRITIS
     Dosage: UNK
  11. LEFLUNOMIDE [Concomitant]
     Indication: RHEUMATOID ARTHRITIS
     Dosage: UNK
  12. FUROSEMIDE [Concomitant]
     Indication: OEDEMA PERIPHERAL
     Dosage: UNK
  13. MELATONIN [Concomitant]
     Dosage: UNK
  14. ENBREL [Suspect]
     Indication: RHEUMATOID ARTHRITIS
     Dosage: UNK

REACTIONS (3)
  - TINEA PEDIS [None]
  - DRUG EFFECT DECREASED [None]
  - INJECTION SITE PAIN [None]
